FAERS Safety Report 8299777-7 (Version None)
Quarter: 2012Q2

REPORT INFORMATION
  Report Type: 
  Country: None (occurrence: None)
  Receive Date: 20120419
  Receipt Date: 20120419
  Transmission Date: 20120825
  Serious: Yes (Other)
  Sender: FDA-Public Use
  Company Number: None

PATIENT
  Sex: Female
  Weight: 842.77 kg

DRUGS (22)
  1. ASPIRIN [Concomitant]
     Route: 048
  2. FUROSEMIDE [Concomitant]
  3. DIGOXIN [Concomitant]
  4. AMBIEN [Concomitant]
  5. MUCINEX [Concomitant]
  6. FLONASE [Concomitant]
  7. RANEXA [Concomitant]
  8. LISINOPRIL [Concomitant]
  9. AMLODIPINE [Concomitant]
  10. RANEXA [Suspect]
     Indication: ANGINA PECTORIS
     Dosage: 500 MG
     Route: 048
     Dates: start: 20120302, end: 20120402
  11. REPLENS  GEL -VAGINAL LUBRICANT [Concomitant]
  12. ALLEGRA [Concomitant]
  13. PEPTO-BISMOL MAX STRENGTH  SUSP [Concomitant]
  14. ERGOCALCIFEROL [Concomitant]
  15. GAVISCON  SUSP [Concomitant]
  16. OMEPRAZOLE [Concomitant]
  17. MINERAL OIL [Concomitant]
  18. SINGULAIR [Concomitant]
  19. PERCOCET-5 [Concomitant]
  20. CARVEDILOL [Concomitant]
  21. CLARITIN [Concomitant]
  22. FLEXERIL [Concomitant]

REACTIONS (3)
  - LIP SWELLING [None]
  - SKIN DISCOLOURATION [None]
  - LIP PAIN [None]
